FAERS Safety Report 4366005-4 (Version None)
Quarter: 2004Q2

REPORT INFORMATION
  Report Type: 
  Country: None (occurrence: None)
  Receive Date: 20040520
  Receipt Date: 20040512
  Transmission Date: 20050107
  Serious: Yes (Hospitalization)
  Sender: FDA-Public Use
  Company Number: 2002125017JP

PATIENT
  Age: 69 Year
  Sex: Male

DRUGS (10)
  1. CABERGOLINE [Suspect]
     Indication: PARKINSON'S DISEASE
     Dosage: ORAL
     Route: 048
     Dates: start: 20011126, end: 20020912
  2. SYMMETREL [Suspect]
     Indication: PARKINSON'S DISEASE
     Dosage: 200 MG/DAY, ORAL
     Route: 048
     Dates: start: 20020401
  3. SYMMETREL [Suspect]
     Indication: PARKINSON'S DISEASE
     Dosage: 200 MG/DAY, ORAL
     Route: 048
     Dates: start: 20020401
  4. CARBIDOPA AND LEVODOPA [Suspect]
     Indication: PARKINSON'S DISEASE
     Dosage: 200 MG/DAY, ORAL
     Route: 048
     Dates: start: 20011126
  5. DOPS(DROXIDOPA) [Suspect]
     Indication: PARKINSON'S DISEASE
     Dosage: 300 MG/DAY
     Dates: start: 20011126
  6. SYMMETREL [Concomitant]
  7. OABTISUB (PANTETHINE) [Concomitant]
  8. MAGNESIUM OXIDE [Concomitant]
  9. POLLAKISU (OXYBUTYNIN HYDROCHLORIDE) [Concomitant]
  10. LAXOBERON [Concomitant]

REACTIONS (14)
  - ANOREXIA [None]
  - AUTONOMIC NERVOUS SYSTEM IMBALANCE [None]
  - BLOOD URINE [None]
  - DEHYDRATION [None]
  - DIFFICULTY IN WALKING [None]
  - DYSURIA [None]
  - EXTRAPYRAMIDAL DISORDER [None]
  - GAIT DISTURBANCE [None]
  - HEADACHE [None]
  - INFECTION [None]
  - MUSCLE RIGIDITY [None]
  - NEUROLEPTIC MALIGNANT SYNDROME [None]
  - RHABDOMYOLYSIS [None]
  - WHITE BLOOD CELL COUNT INCREASED [None]
